FAERS Safety Report 6597714-4 (Version None)
Quarter: 2010Q1

REPORT INFORMATION
  Report Type: 
  Country: None (occurrence: None)
  Receive Date: 20100216
  Receipt Date: 20100208
  Transmission Date: 20100710
  Serious: Yes (Hospitalization)
  Sender: FDA-Public Use
  Company Number: 2010SP005975

PATIENT
  Age: 25 Year
  Sex: Female

DRUGS (3)
  1. BETAMATHASONE DIPROPIONATE [Suspect]
     Indication: PSORIASIS
     Dosage: CUT
     Route: 003
  2. TAMIFLU [Suspect]
     Indication: INFLUENZA
     Dosage: 75 MG; ONCE; PO
     Route: 048
     Dates: start: 20091212, end: 20091212
  3. DIANE 35 (DIANE) [Suspect]
     Indication: ORAL CONTRACEPTION
     Dosage: 35 MCG; QD; PO
     Route: 048

REACTIONS (3)
  - H1N1 INFLUENZA [None]
  - NEUTROPENIA [None]
  - PANCREATITIS [None]
